FAERS Safety Report 9029829 (Version 1)
Quarter: 2013Q1

REPORT INFORMATION
  Report Type: Spontaneous
  Country: US (occurrence: US)
  Receive Date: 20130124
  Receipt Date: 20130124
  Transmission Date: 20140127
  Serious: Yes (Hospitalization)
  Sender: FDA-Public Use
  Company Number: CHPA2013US001330

PATIENT
  Age: 43 Year
  Sex: Male

DRUGS (6)
  1. MAALOX ANTACID/ANTIGAS MAX LIQ [Suspect]
     Indication: ULCER
     Dosage: UNK, 3 TO 4 TIMES A MONTH, 2 TO 3 TIMES A DAY
     Route: 048
     Dates: end: 201206
  2. MAALOX ANTACID/ANTIGAS MS LIQ COOL MINT [Suspect]
     Indication: ULCER
     Dosage: UNK,  3 TO 4 TIMES A MONTH, 2 TO 3 TIMES A DAY
     Route: 048
     Dates: end: 201206
  3. MAALOX [Suspect]
     Indication: ULCER
     Dosage: COUPLE,  3 TO 4 TIMES A MONTH, 2 TO 3 TIMES A DAY
     Route: 048
     Dates: end: 201206
  4. BETA BLOCKING AGENTS [Concomitant]
     Indication: BLOOD PRESSURE
     Dosage: UNK, UNK
  5. COZAAR [Concomitant]
     Dosage: UNK, UNK
  6. OMEPRAZOLE [Concomitant]
     Indication: ULCER
     Dosage: UNK, QD

REACTIONS (4)
  - Myocardial infarction [Recovered/Resolved]
  - Arterial occlusive disease [Recovered/Resolved]
  - Therapeutic response unexpected [Unknown]
  - Off label use [Unknown]
